FAERS Safety Report 8336808-X (Version None)
Quarter: 2012Q2

REPORT INFORMATION
  Report Type: 
  Country: None (occurrence: None)
  Receive Date: 20120501
  Receipt Date: 20120418
  Transmission Date: 20120825
  Serious: Yes (Other)
  Sender: FDA-Public Use
  Company Number: 12-309

PATIENT
  Age: 80 Year
  Sex: Male
  Weight: 77 kg

DRUGS (5)
  1. BAYER CHEWABLE LOW DOSE BABY ASPIRIN [Concomitant]
  2. AMLODIPINE [Concomitant]
  3. TRAMADOL HYDROCHLORIDE [Concomitant]
  4. NAPROXEN SODIUM [Suspect]
     Indication: ARTHRITIS
     Dosage: IDF / TID / ORAL
     Route: 048
     Dates: start: 20070101, end: 20120416
  5. CILOSTAZOL [Concomitant]

REACTIONS (1)
  - RENAL IMPAIRMENT [None]
